FAERS Safety Report 24415063 (Version 2)
Quarter: 2025Q2

REPORT INFORMATION
  Report Type: Spontaneous
  Country: SE (occurrence: SE)
  Receive Date: 20241009
  Receipt Date: 20250408
  Transmission Date: 20250716
  Serious: Yes (Death, Hospitalization, Other)
  Sender: AUROBINDO
  Company Number: SE-VITABALANS-095-2024

PATIENT
  Sex: Female

DRUGS (2)
  1. METFORMIN [Suspect]
     Active Substance: METFORMIN HYDROCHLORIDE
     Indication: Diabetes mellitus
     Route: 065
  2. CANDESARTAN [Suspect]
     Active Substance: CANDESARTAN
     Indication: Hypertension
     Route: 065

REACTIONS (2)
  - Lactic acidosis [Fatal]
  - Acute kidney injury [Fatal]
